FAERS Safety Report 7301443-9 (Version None)
Quarter: 2011Q1

REPORT INFORMATION
  Report Type: 
  Country: None (occurrence: None)
  Receive Date: 20110218
  Receipt Date: 20110216
  Transmission Date: 20110831
  Serious: Yes (Hospitalization, Other)
  Sender: FDA-Public Use
  Company Number: US-PFIZER INC-2011034548

PATIENT

DRUGS (1)
  1. TIKOSYN [Suspect]

REACTIONS (3)
  - DYSPNOEA [None]
  - GASTROINTESTINAL TUBE INSERTION [None]
  - INFECTION [None]
